FAERS Safety Report 11107347 (Version 2)
Quarter: 2015Q2

REPORT INFORMATION
  Report Type: Report from Study
  Country: DE (occurrence: DE)
  Receive Date: 20150512
  Receipt Date: 20150521
  Transmission Date: 20150821
  Serious: Yes (Other)
  Sender: FDA-Public Use
  Company Number: DE-GILEAD-2015-0152172

PATIENT
  Age: 53 Year
  Sex: Female
  Weight: 121.5 kg

DRUGS (6)
  1. ATACAND PROTECT [Concomitant]
     Indication: CARDIOVASCULAR DISORDER
     Dosage: 32 MG, UNK
     Route: 065
  2. METAMIZOL                          /06276702/ [Concomitant]
     Active Substance: METAMIZOLE
     Indication: PRODUCT USED FOR UNKNOWN INDICATION
     Dosage: 500 MG, UNK
     Route: 065
  3. METOBETA [Concomitant]
     Indication: CARDIOVASCULAR DISORDER
     Dosage: 100 MG, UNK
     Route: 065
  4. TORASEMID [Concomitant]
     Active Substance: TORSEMIDE
     Indication: CARDIOVASCULAR DISORDER
     Dosage: 10 MG, UNK
     Route: 065
  5. TRIMIPRAMIN-NEURAXPHARM [Concomitant]
     Indication: PRODUCT USED FOR UNKNOWN INDICATION
     Dosage: 25 MG, UNK
     Route: 065
  6. LEDIPASVIR/SOFOSBUVIR [Suspect]
     Active Substance: LEDIPASVIR\SOFOSBUVIR
     Indication: CHRONIC HEPATITIS C
     Dosage: 1 DF, QD
     Route: 048
     Dates: start: 20150129, end: 20150424

REACTIONS (2)
  - Supraventricular extrasystoles [Not Recovered/Not Resolved]
  - Palpitations [Not Recovered/Not Resolved]

NARRATIVE: CASE EVENT DATE: 20150225
